FAERS Safety Report 8273390-X (Version None)
Quarter: 2012Q2

REPORT INFORMATION
  Report Type: 
  Country: None (occurrence: None)
  Receive Date: 20120411
  Receipt Date: 20120405
  Transmission Date: 20120825
  Serious: Yes (Hospitalization, Other)
  Sender: FDA-Public Use
  Company Number: PHEH2008US05098

PATIENT
  Sex: Female

DRUGS (79)
  1. AREDIA [Suspect]
  2. XANAX [Concomitant]
  3. MULTI-VITAMINS [Concomitant]
  4. LASIX [Concomitant]
  5. DILAUDID [Concomitant]
  6. NEURONTIN [Concomitant]
  7. MORPHINE [Concomitant]
  8. PENICILLIN ^GRUNENTHAL^ [Concomitant]
  9. SUBUTEX [Concomitant]
  10. LIORESAL [Concomitant]
  11. METHADONE HCL [Concomitant]
  12. VAGIFEM [Concomitant]
  13. CALCIUM CARBONATE [Concomitant]
  14. GABAPENTIN [Concomitant]
  15. AVELOX [Concomitant]
  16. VALTREX [Concomitant]
  17. IBUPROFEN [Concomitant]
  18. AMBIEN [Concomitant]
  19. PEPCID [Concomitant]
  20. FOLIC ACID [Concomitant]
  21. CYMBALTA [Concomitant]
  22. ELAVIL [Concomitant]
  23. OMEPRAZOLE [Concomitant]
  24. CIPRO [Concomitant]
  25. DOXYCYCLINE [Concomitant]
  26. LIDODERM [Concomitant]
  27. SONATA [Concomitant]
  28. FISH OIL [Concomitant]
  29. POTASSIUM [Concomitant]
  30. ARIMIDEX [Concomitant]
  31. BEXTRA [Concomitant]
  32. HYDROCHLOROTHIAZIDE [Concomitant]
  33. CALCIUM WITH VITAMIN D [Concomitant]
  34. FEMARA [Concomitant]
  35. SINGULAIR [Concomitant]
  36. ELMIRON [Concomitant]
  37. NORVASC [Concomitant]
  38. LIMBREL [Concomitant]
  39. LEVAQUIN [Concomitant]
  40. BACLOFEN [Concomitant]
  41. PRELIEF [Concomitant]
  42. CEPASTAT [Concomitant]
  43. SINEQUAN [Concomitant]
  44. VITAMIN E [Concomitant]
  45. KEFLEX [Concomitant]
  46. ZOMETA [Suspect]
     Indication: BREAST CANCER
     Dosage: 4 MG, UNK
     Dates: start: 20010101, end: 20070101
  47. FENTANYL [Concomitant]
  48. BENADRYL ^ACHE^ [Concomitant]
  49. UROCIT-K [Concomitant]
  50. ARIXTRA [Concomitant]
  51. EVOXAC [Concomitant]
  52. METHOCARBAMOL [Concomitant]
  53. ZITHROMAX [Concomitant]
  54. LIDOCAINE HCL VISCOUS [Concomitant]
  55. MAGNESIUM [Concomitant]
  56. PROZAC [Concomitant]
  57. MS CONTIN [Concomitant]
     Dosage: UNK
  58. VICODIN [Concomitant]
  59. FASLODEX [Concomitant]
     Dates: end: 20080301
  60. ASCORBIC ACID [Concomitant]
  61. OXYCONTIN [Concomitant]
  62. ACIPHEX [Concomitant]
  63. TOPRAL [Concomitant]
  64. GLUCOSAMINE [Concomitant]
  65. ANCEF [Concomitant]
  66. PROTONIX [Concomitant]
  67. ROBAXIN [Concomitant]
  68. LEXAPRO [Concomitant]
  69. TRIAMTERENE [Concomitant]
  70. METOPROLOL TARTRATE [Concomitant]
  71. LYRICA [Concomitant]
  72. AMITRIPTYLINE HYDROCHLORIDE [Concomitant]
  73. TOPROL-XL [Concomitant]
  74. NYSTATIN [Concomitant]
     Dosage: UNK
  75. ENABLEX [Concomitant]
  76. NAPROSYN [Concomitant]
  77. NORCO [Concomitant]
  78. PROVIGIL [Concomitant]
  79. ZOLOFT [Concomitant]

REACTIONS (98)
  - RESPIRATORY DISTRESS [None]
  - METASTASES TO LIVER [None]
  - ODYNOPHAGIA [None]
  - INFECTION [None]
  - PULMONARY OEDEMA [None]
  - FALL [None]
  - EYE INFECTION [None]
  - CHEST WALL MASS [None]
  - LYMPHADENOPATHY [None]
  - VOMITING [None]
  - SPINAL COLUMN STENOSIS [None]
  - MELAENA [None]
  - PROTEINURIA [None]
  - GASTRITIS [None]
  - PAIN [None]
  - JOINT EFFUSION [None]
  - TONGUE ULCERATION [None]
  - GROIN PAIN [None]
  - ABDOMINAL PAIN [None]
  - ARTHRALGIA [None]
  - PAIN IN EXTREMITY [None]
  - PYREXIA [None]
  - DRY MOUTH [None]
  - DIZZINESS [None]
  - HAEMORRHOIDS [None]
  - HEPATIC CYST [None]
  - FEMUR FRACTURE [None]
  - DYSPNOEA [None]
  - CARDIAC FAILURE CONGESTIVE [None]
  - EARLY SATIETY [None]
  - EPISTAXIS [None]
  - ACCIDENTAL OVERDOSE [None]
  - MITRAL VALVE INCOMPETENCE [None]
  - FLATULENCE [None]
  - PYURIA [None]
  - ELECTROCARDIOGRAM ABNORMAL [None]
  - HIATUS HERNIA [None]
  - ALTERED STATE OF CONSCIOUSNESS [None]
  - HYPERTONIC BLADDER [None]
  - SLEEP APNOEA SYNDROME [None]
  - METASTASES TO LUNG [None]
  - OSTEONECROSIS OF JAW [None]
  - PAIN IN JAW [None]
  - BONE DISORDER [None]
  - HAND FRACTURE [None]
  - SPINAL OSTEOARTHRITIS [None]
  - EYE PAIN [None]
  - HYPERKERATOSIS [None]
  - IRRITABLE BOWEL SYNDROME [None]
  - SINUS HEADACHE [None]
  - MAJOR DEPRESSION [None]
  - ACQUIRED OESOPHAGEAL WEB [None]
  - INCONTINENCE [None]
  - ANOGENITAL WARTS [None]
  - OSTEOARTHRITIS [None]
  - CHONDROMALACIA [None]
  - HIP FRACTURE [None]
  - CYSTITIS INTERSTITIAL [None]
  - HAEMOLYTIC ANAEMIA [None]
  - NEURALGIA [None]
  - GASTROINTESTINAL INFLAMMATION [None]
  - NAUSEA [None]
  - MENISCUS LESION [None]
  - FOOT DEFORMITY [None]
  - HYPOMANIA [None]
  - RENAL FAILURE [None]
  - URINARY TRACT INFECTION [None]
  - ANXIETY [None]
  - FACIAL BONES FRACTURE [None]
  - GLOSSITIS [None]
  - SCOLIOSIS [None]
  - HYPOAESTHESIA [None]
  - NEURITIS [None]
  - CHEST PAIN [None]
  - URINARY RETENTION [None]
  - RESPIRATORY FAILURE [None]
  - LUNG INFILTRATION [None]
  - ASPIRATION [None]
  - URETHRAL STENOSIS [None]
  - INTERVERTEBRAL DISC PROTRUSION [None]
  - SYNOVIAL CYST [None]
  - NECK PAIN [None]
  - INSOMNIA [None]
  - PALPITATIONS [None]
  - MUSCULOSKELETAL PAIN [None]
  - CELLULITIS [None]
  - DIVERTICULUM [None]
  - ILIUM FRACTURE [None]
  - DEFORMITY [None]
  - INJURY [None]
  - EMOTIONAL DISTRESS [None]
  - MOUTH ULCERATION [None]
  - DECREASED APPETITE [None]
  - DYSPEPSIA [None]
  - DIARRHOEA [None]
  - GENITAL HERPES [None]
  - BREAST CANCER RECURRENT [None]
  - FOOT FRACTURE [None]
